FAERS Safety Report 26058786 (Version 1)
Quarter: 2025Q4

REPORT INFORMATION
  Report Type: Report from Study
  Country: US (occurrence: US)
  Receive Date: 20251118
  Receipt Date: 20251118
  Transmission Date: 20260117
  Serious: Yes (Hospitalization, Other)
  Sender: JOHNSON AND JOHNSON
  Company Number: US-JNJFOC-20251157254

PATIENT
  Age: 43 Year
  Sex: Female

DRUGS (1)
  1. SPRAVATO [Suspect]
     Active Substance: ESKETAMINE
     Indication: Depression
     Dosage: ?56 MG, 1 TOTAL DOSES?
     Route: 045
     Dates: start: 20251112, end: 20251112

REACTIONS (5)
  - Dissociation [Unknown]
  - Panic attack [Unknown]
  - Vomiting [Unknown]
  - Diarrhoea [Unknown]
  - Physical examination abnormal [Unknown]

NARRATIVE: CASE EVENT DATE: 20251112
